FAERS Safety Report 10458441 (Version 1)
Quarter: 2014Q3

REPORT INFORMATION
  Report Type: Spontaneous
  Country: US (occurrence: None)
  Receive Date: 20140916
  Receipt Date: 20140916
  Transmission Date: 20150326
  Serious: No
  Sender: FDA-Public Use
  Company Number: None

PATIENT
  Age: 62 Year
  Sex: Female
  Weight: 61.24 kg

DRUGS (4)
  1. CANDESARTAN CILEXETIL. [Suspect]
     Active Substance: CANDESARTAN CILEXETIL
     Indication: MIGRAINE PROPHYLAXIS
     Dosage: 8 MG 1 PILL SPLIT 4 MG AM/4 MG PM BY MOUTH
     Route: 048
     Dates: start: 20140623, end: 20140808
  2. FLONASE [Concomitant]
     Active Substance: FLUTICASONE PROPIONATE
  3. ISTALOL [Concomitant]
     Active Substance: TIMOLOL MALEATE
  4. ATACAND [Concomitant]
     Active Substance: CANDESARTAN CILEXETIL

REACTIONS (4)
  - Product physical issue [None]
  - Product substitution issue [None]
  - Migraine [None]
  - Product quality issue [None]

NARRATIVE: CASE EVENT DATE: 201407
